FAERS Safety Report 8835409 (Version 1)
Quarter: 2012Q4

REPORT INFORMATION
  Report Type: 
  Country: US (occurrence: US)
  Receive Date: 20121011
  Receipt Date: 20121011
  Transmission Date: 20130627
  Serious: Yes (Hospitalization)
  Sender: FDA-Public Use
  Company Number: US-B.I. PHARMACEUTICALS,INC./RIDGEFIELD-2012-BP-25224YA

PATIENT
  Age: 75 Year
  Sex: Male
  Weight: 84.5 kg

DRUGS (11)
  1. TAMSULOSIN [Suspect]
     Route: 065
  2. SUNITINIB MALATE [Suspect]
     Indication: RENAL CELL CARCINOMA
     Route: 048
     Dates: start: 20070830
  3. SUNITINIB MALATE [Suspect]
     Route: 048
     Dates: start: 20080911
  4. SORAFENIB [Suspect]
     Indication: RENAL CELL CARCINOMA
     Route: 048
     Dates: start: 20070830
  5. SORAFENIB [Suspect]
     Route: 048
     Dates: start: 20080911
  6. CANDESARTAN [Suspect]
     Dosage: 4 mg
     Route: 065
  7. CANDESARTAN [Suspect]
     Dosage: 8 mg
     Route: 065
  8. CARVEDILOL [Suspect]
     Route: 065
  9. FINASTERIDE (FINASTERIDE) [Suspect]
     Route: 065
  10. FUROSEMIDE (FUROSEMIDE) [Concomitant]
  11. LANSOPRAZOLE (LANSOPRAZOLE) [Concomitant]

REACTIONS (1)
  - Syncope [Recovered/Resolved]
